FAERS Safety Report 8574285-4 (Version None)
Quarter: 2012Q3

REPORT INFORMATION
  Report Type: 
  Country: None (occurrence: None)
  Receive Date: 20120806
  Receipt Date: 20120329
  Transmission Date: 20120928
  Serious: Yes (Other)
  Sender: FDA-Public Use
  Company Number: US-BAYER-200927522NA

PATIENT
  Age: 43 Year
  Sex: Male
  Weight: 74.091 kg

DRUGS (5)
  1. MAGNEVIST [Suspect]
     Indication: LUMBAR RADICULOPATHY
  2. HYDROCODONE BITARTRATE [Concomitant]
     Dosage: IN SHOULDER
  3. MAGNEVIST [Suspect]
     Indication: NUCLEAR MAGNETIC RESONANCE IMAGING
     Dosage: LEFT ARM
     Dates: start: 20081027, end: 20081027
  4. COLCHICINE [Concomitant]
  5. NEURONTIN [Concomitant]
     Dosage: 300 MG AT BEDTIME FOR 3 DAYS AND THEN GRADUAL INCREASE TO THREE TIMES PER DAY

REACTIONS (15)
  - PRURITUS [None]
  - RASH PAPULAR [None]
  - RENAL TUBULAR DISORDER [None]
  - SKIN DISORDER [None]
  - RENAL FAILURE CHRONIC [None]
  - RENAL FAILURE [None]
  - NEPHROGENIC SYSTEMIC FIBROSIS [None]
  - RASH MACULAR [None]
  - ARTHRALGIA [None]
  - SKIN TIGHTNESS [None]
  - PROCEDURAL HYPOTENSION [None]
  - SKIN BURNING SENSATION [None]
  - PEAU D'ORANGE [None]
  - NEPHRECTOMY [None]
  - BLOOD POTASSIUM DECREASED [None]
